FAERS Safety Report 5193400-6 (Version None)
Quarter: 2006Q4

REPORT INFORMATION
  Report Type: 
  Country: None (occurrence: None)
  Receive Date: 20061228
  Receipt Date: 20060410
  Transmission Date: 20070319
  Serious: No
  Sender: FDA-Public Use
  Company Number: US-GLAXOSMITHKLINE-A0601156A

PATIENT
  Sex: Female

DRUGS (7)
  1. FLONASE [Suspect]
     Dosage: 50MCG TWICE PER DAY
     Route: 045
     Dates: start: 20030101
  2. CLARITIN [Concomitant]
  3. COUGH SYRUP [Concomitant]
  4. ADVIL [Concomitant]
  5. SALINE SPRAY [Concomitant]
  6. AFRIN [Concomitant]
  7. 4 WAY NASAL (UNSPECIFIED) [Concomitant]

REACTIONS (1)
  - THERAPEUTIC RESPONSE DECREASED [None]
